FAERS Safety Report 10912864 (Version 1)
Quarter: 2015Q1

REPORT INFORMATION
  Report Type: Spontaneous
  Country: US (occurrence: None)
  Receive Date: 20150310
  Receipt Date: 20150310
  Transmission Date: 20150721
  Serious: Yes (Other)
  Sender: FDA-Public Use
  Company Number: BD-2015-0227

PATIENT
  Age: 20 Year
  Sex: Female

DRUGS (1)
  1. DIPHENHYDRAMINE [Suspect]
     Active Substance: DIPHENHYDRAMINE
     Indication: PRODUCT USED FOR UNKNOWN INDICATION
     Route: 048

REACTIONS (9)
  - Drug screen false positive [None]
  - Hallucination, visual [None]
  - Overdose [None]
  - Dry mouth [None]
  - Loss of consciousness [None]
  - Lethargy [None]
  - Electrocardiogram QT prolonged [None]
  - Tachycardia [None]
  - Urinary retention [None]
